FAERS Safety Report 7809718-1 (Version None)
Quarter: 2011Q4

REPORT INFORMATION
  Report Type: 
  Country: None (occurrence: None)
  Receive Date: 20111012
  Receipt Date: 20111004
  Transmission Date: 20120403
  Serious: Yes (Other)
  Sender: FDA-Public Use
  Company Number: JP-GLAXOSMITHKLINE-B0753558A

PATIENT
  Sex: Male

DRUGS (7)
  1. GASMOTIN [Concomitant]
     Route: 048
  2. DUTASTERIDE [Suspect]
     Indication: BENIGN PROSTATIC HYPERPLASIA
     Route: 048
  3. LANSOPRAZOLE [Concomitant]
  4. MICARDIS [Concomitant]
     Route: 048
  5. NEUROVITAN [Concomitant]
     Route: 048
  6. LIPITOR [Concomitant]
     Route: 048
     Dates: end: 20110901
  7. URIEF [Concomitant]
     Route: 048

REACTIONS (2)
  - INAPPROPRIATE ANTIDIURETIC HORMONE SECRETION [None]
  - HYPONATRAEMIA [None]
